FAERS Safety Report 25646518 (Version 1)
Quarter: 2025Q3

REPORT INFORMATION
  Report Type: Report from Study
  Country: US (occurrence: US)
  Receive Date: 20250805
  Receipt Date: 20250805
  Transmission Date: 20251021
  Serious: Yes (Other)
  Sender: GILEAD
  Company Number: US-GILEAD-2025-0722930

PATIENT
  Age: 31 Year
  Sex: Male

DRUGS (1)
  1. AXICABTAGENE CILOLEUCEL [Suspect]
     Active Substance: AXICABTAGENE CILOLEUCEL
     Indication: Diffuse large B-cell lymphoma
     Route: 065
     Dates: start: 202005, end: 202005

REACTIONS (5)
  - Pneumonia fungal [Recovered/Resolved]
  - Pneumonia bacterial [Recovered/Resolved]
  - Cytokine release syndrome [Recovered/Resolved]
  - Gait disturbance [Recovered/Resolved]
  - Immunoglobulins decreased [Not Recovered/Not Resolved]

NARRATIVE: CASE EVENT DATE: 20200601
